FAERS Safety Report 9267798 (Version 1)
Quarter: 2013Q2

REPORT INFORMATION
  Report Type: Spontaneous
  Country: US (occurrence: US)
  Receive Date: 20130502
  Receipt Date: 20130502
  Transmission Date: 20140414
  Serious: No
  Sender: FDA-Public Use
  Company Number: US-ALEXION-A201200944

PATIENT
  Sex: Male
  Weight: 93.8 kg

DRUGS (8)
  1. SOLIRIS 300MG [Suspect]
     Indication: PAROXYSMAL NOCTURNAL HAEMOGLOBINURIA
     Dosage: UNK, Q2W
     Route: 042
     Dates: start: 2006
  2. PRILOSEC [Concomitant]
     Dosage: 20 MG, QD
  3. OXYCODONE [Concomitant]
     Dosage: 5 MG, Q 4 HRS
  4. MS CONTIN [Concomitant]
     Dosage: 30 MG, Q 2 HRS
  5. PREDNISONE [Concomitant]
     Dosage: 10 MG, QD
  6. KCL [Concomitant]
     Dosage: 20 MEQ, QD
  7. FOLIC ACID [Concomitant]
     Dosage: 1 MG, QD
  8. COUMADIN [Concomitant]
     Dosage: 5 MG, UNK

REACTIONS (2)
  - Ligament sprain [Unknown]
  - Ligament rupture [Unknown]
